FAERS Safety Report 25865719 (Version 3)
Quarter: 2025Q4

REPORT INFORMATION
  Report Type: Spontaneous
  Country: US (occurrence: US)
  Receive Date: 20250930
  Receipt Date: 20251118
  Transmission Date: 20260117
  Serious: No
  Sender: TRAVERE THERAPEUTICS
  Company Number: US-TRAVERE-2025TVT01501

PATIENT
  Age: 63 Year
  Sex: Male

DRUGS (2)
  1. FILSPARI [Suspect]
     Active Substance: SPARSENTAN
     Indication: IgA nephropathy
     Route: 048
     Dates: start: 202507, end: 20250926
  2. FILSPARI [Suspect]
     Active Substance: SPARSENTAN
     Route: 048
     Dates: start: 202507, end: 202507

REACTIONS (6)
  - Pruritus [Unknown]
  - Anaemia [None]
  - Fatigue [Unknown]
  - Blood iron decreased [None]
  - Haemoglobin decreased [None]
  - Renal impairment [Unknown]
